FAERS Safety Report 6415734-7 (Version None)
Quarter: 2009Q4

REPORT INFORMATION
  Report Type: 
  Country: None (occurrence: None)
  Receive Date: 20091027
  Receipt Date: 20091015
  Transmission Date: 20100525
  Serious: Yes (Other)
  Sender: FDA-Public Use
  Company Number: IE-PFIZER INC-2009284312

PATIENT
  Age: 56 Year

DRUGS (1)
  1. SOMAVERT [Suspect]
     Dosage: 30 MG, UNK

REACTIONS (1)
  - SUBARACHNOID HAEMORRHAGE [None]
